FAERS Safety Report 9486549 (Version 2)
Quarter: 2013Q3

REPORT INFORMATION
  Report Type: Spontaneous
  Country: US (occurrence: US)
  Receive Date: 20130829
  Receipt Date: 20130903
  Transmission Date: 20140515
  Serious: Yes (Other)
  Sender: FDA-Public Use
  Company Number: US-FRI-1000048102

PATIENT
  Age: 79 Year
  Sex: Female

DRUGS (5)
  1. BYSTOLIC [Suspect]
     Indication: HYPERTENSION
     Dosage: 2.5 MG
     Route: 048
     Dates: start: 20130809, end: 20130820
  2. BYSTOLIC [Suspect]
     Indication: HYPERTENSION
     Dosage: 0.625 MG
     Route: 048
     Dates: start: 20130827
  3. TYLENOL W/CODEINE [Concomitant]
     Indication: BACK PAIN
     Dosage: PRN
  4. DIAZEPAM [Concomitant]
     Indication: NERVOUSNESS
     Dosage: PRN
  5. DIAZEPAM [Concomitant]
     Indication: INSOMNIA

REACTIONS (3)
  - Hypotension [Recovered/Resolved]
  - Heart rate decreased [Recovered/Resolved]
  - Abdominal pain upper [Recovering/Resolving]
